FAERS Safety Report 9114685 (Version 1)
Quarter: 2013Q1

REPORT INFORMATION
  Report Type: Spontaneous
  Country: US (occurrence: US)
  Receive Date: 20130129
  Receipt Date: 20130129
  Transmission Date: 20140127
  Serious: No
  Sender: FDA-Public Use
  Company Number: US-ABBOTT-12P-163-0940037-00

PATIENT
  Sex: Female
  Weight: 86.26 kg

DRUGS (5)
  1. HUMIRA 40 MG/0.8 ML PEN [Suspect]
     Indication: PSORIASIS
     Dates: start: 2011
  2. PAROXETINE [Concomitant]
     Indication: DEPRESSION
  3. PAROXETINE [Concomitant]
     Indication: MYOTONIC DYSTROPHY
  4. PROAIR [Concomitant]
     Indication: MYOTONIC DYSTROPHY
  5. SPIRIVA [Concomitant]
     Indication: MYOTONIC DYSTROPHY

REACTIONS (1)
  - Injection site pain [Not Recovered/Not Resolved]
